FAERS Safety Report 10919254 (Version 4)
Quarter: 2015Q2

REPORT INFORMATION
  Report Type: Other
  Country: US (occurrence: US)
  Receive Date: 20150316
  Receipt Date: 20150413
  Transmission Date: 20150821
  Serious: Yes (Hospitalization)
  Sender: FDA-Public Use
  Company Number: US-UNITED THERAPEUTICS-UNT-2015-002591

PATIENT
  Age: 58 Year
  Sex: Female
  Weight: 91.61 kg

DRUGS (5)
  1. REVATIO [Concomitant]
     Active Substance: SILDENAFIL CITRATE
     Indication: PRODUCT USED FOR UNKNOWN INDICATION
  2. TYVASO [Suspect]
     Active Substance: TREPROSTINIL
     Dosage: UNK
     Dates: start: 20150303
  3. JANTOVEN [Concomitant]
     Active Substance: WARFARIN SODIUM
     Indication: PRODUCT USED FOR UNKNOWN INDICATION
  4. TYVASO [Suspect]
     Active Substance: TREPROSTINIL
     Indication: PULMONARY HYPERTENSION
     Dosage: 18-36 ?G, QID
     Dates: start: 20141215, end: 201502
  5. TYVASO [Suspect]
     Active Substance: TREPROSTINIL
     Dosage: 18-36 ?G, QID

REACTIONS (12)
  - Pain in extremity [Unknown]
  - Therapy cessation [Unknown]
  - Diarrhoea haemorrhagic [Unknown]
  - Asthenia [Unknown]
  - Influenza [Recovering/Resolving]
  - Malaise [Unknown]
  - Internal haemorrhage [Unknown]
  - Treatment noncompliance [Unknown]
  - Renal failure [Unknown]
  - Dehydration [Recovering/Resolving]
  - Cough [Unknown]
  - Gastric mucosa erythema [Unknown]

NARRATIVE: CASE EVENT DATE: 201502
